FAERS Safety Report 7263239-6 (Version None)
Quarter: 2011Q1

REPORT INFORMATION
  Report Type: 
  Country: None (occurrence: None)
  Receive Date: 20110130
  Receipt Date: 20101013
  Transmission Date: 20110831
  Serious: No
  Sender: FDA-Public Use
  Company Number: US-ABBOTT-10P-163-0678316-00

PATIENT
  Sex: Female

DRUGS (2)
  1. DIFLUNISAL [Concomitant]
     Indication: PAIN
     Dates: end: 20100601
  2. HUMIRA [Suspect]
     Indication: PSORIATIC ARTHROPATHY
     Route: 067
     Dates: start: 20081101, end: 20100601

REACTIONS (4)
  - NASOPHARYNGITIS [None]
  - PAIN IN EXTREMITY [None]
  - SINUS DISORDER [None]
  - ANXIETY [None]
